FAERS Safety Report 11054995 (Version 1)
Quarter: 2015Q2

REPORT INFORMATION
  Report Type: Spontaneous
  Country: US (occurrence: US)
  Receive Date: 20150422
  Receipt Date: 20150422
  Transmission Date: 20150821
  Serious: Yes (Hospitalization)
  Sender: FDA-Public Use
  Company Number: US-SA-2014SA053853

PATIENT
  Age: 74 Year
  Sex: Female

DRUGS (4)
  1. LOVENOX [Suspect]
     Active Substance: ENOXAPARIN SODIUM
     Indication: SARCOMA
     Route: 065
     Dates: start: 201310
  2. WARFARIN [Concomitant]
     Active Substance: WARFARIN
  3. ADRIAMYCIN [Concomitant]
     Active Substance: DOXORUBICIN HYDROCHLORIDE
  4. LOVENOX [Suspect]
     Active Substance: ENOXAPARIN SODIUM
     Indication: SARCOMA
     Route: 065

REACTIONS (3)
  - Nodule [Not Recovered/Not Resolved]
  - Contusion [Not Recovered/Not Resolved]
  - Urticaria [Not Recovered/Not Resolved]
